FAERS Safety Report 4608651-6 (Version None)
Quarter: 2005Q1

REPORT INFORMATION
  Report Type: 
  Country: None (occurrence: None)
  Receive Date: 20050315
  Receipt Date: 20050120
  Transmission Date: 20050727
  Serious: Yes (Hospitalization)
  Sender: FDA-Public Use
  Company Number: US-AMGEN-US108700

PATIENT
  Sex: Male
  Weight: 80 kg

DRUGS (10)
  1. EPOGEN [Suspect]
     Indication: DIALYSIS
     Route: 042
     Dates: start: 20020601
  2. TRENTAL [Concomitant]
     Dates: start: 20050116
  3. SENSIPAR [Concomitant]
     Indication: HYPERPARATHYROIDISM SECONDARY
     Route: 048
     Dates: start: 20040617
  4. MEVACOR [Concomitant]
  5. RENAGEL [Concomitant]
  6. ASPIRIN [Concomitant]
  7. PROTONIX [Concomitant]
  8. INSULIN [Concomitant]
  9. NEPHRO-CAPS [Concomitant]
  10. VENOFER [Concomitant]

REACTIONS (5)
  - ANAEMIA [None]
  - BRONCHITIS ACUTE [None]
  - IRON DEFICIENCY [None]
  - PYREXIA [None]
  - THERAPEUTIC RESPONSE DECREASED [None]
